FAERS Safety Report 18713580 (Version 1)
Quarter: 2021Q1

REPORT INFORMATION
  Report Type: Spontaneous
  Country: US (occurrence: US)
  Receive Date: 20210107
  Receipt Date: 20210107
  Transmission Date: 20210419
  Serious: Yes (Death)
  Sender: FDA-Public Use
  Company Number: US-ALVOGEN-2021-ALVOGEN-116006

PATIENT
  Age: 84 Year
  Sex: Male

DRUGS (5)
  1. ZALEPLON. [Suspect]
     Active Substance: ZALEPLON
     Indication: INTENTIONAL PRODUCT MISUSE
     Dosage: ROUTE OF ADMINISTRATION: INGST
     Route: 048
  2. MIRTAZAPINE. [Suspect]
     Active Substance: MIRTAZAPINE
     Indication: INTENTIONAL PRODUCT MISUSE
     Dosage: ROUTE OF ADMINISTRATION: INGST
     Route: 048
  3. GABAPENTIN. [Suspect]
     Active Substance: GABAPENTIN
     Indication: INTENTIONAL PRODUCT MISUSE
     Dosage: ROUTE OF ADMINISTRATION: INGST
     Route: 048
  4. OXYCODONE [Suspect]
     Active Substance: OXYCODONE
     Indication: INTENTIONAL PRODUCT MISUSE
     Dosage: ROUTE OF ADMINISTRATION: INGST
     Route: 048
  5. DIPHENHYDRAMINE. [Suspect]
     Active Substance: DIPHENHYDRAMINE
     Indication: INTENTIONAL PRODUCT MISUSE
     Dosage: ROUTE OF ADMINISTRATION: INGST
     Route: 048

REACTIONS (1)
  - Intentional product misuse [Fatal]
